FAERS Safety Report 20214436 (Version 2)
Quarter: 2021Q4

REPORT INFORMATION
  Report Type: Report from Study
  Country: AR (occurrence: AR)
  Receive Date: 20211221
  Receipt Date: 20211227
  Transmission Date: 20220304
  Serious: Yes (Hospitalization, Other)
  Sender: FDA-Public Use
  Company Number: AR-TAKEDA-2021TUS080743

PATIENT
  Sex: Male
  Weight: 110 kg

DRUGS (3)
  1. VELAGLUCERASE ALFA [Suspect]
     Active Substance: VELAGLUCERASE ALFA
     Indication: Gaucher^s disease
     Dosage: 60 INTERNATIONAL UNIT/KILOGRAM, Q2WEEKS
     Route: 042
     Dates: start: 20131230
  2. VELAGLUCERASE ALFA [Suspect]
     Active Substance: VELAGLUCERASE ALFA
     Dosage: 14 DOSAGE FORM, Q2WEEKS
     Route: 042
     Dates: start: 20131230
  3. VELAGLUCERASE ALFA [Suspect]
     Active Substance: VELAGLUCERASE ALFA
     Dosage: 14 DOSAGE FORM, Q2WEEKS
     Route: 042
     Dates: start: 20131230

REACTIONS (2)
  - Erysipelas [Recovering/Resolving]
  - Unevaluable event [Recovering/Resolving]
